FAERS Safety Report 6882535-5 (Version None)
Quarter: 2010Q3

REPORT INFORMATION
  Report Type: 
  Country: None (occurrence: None)
  Receive Date: 20100729
  Receipt Date: 20100720
  Transmission Date: 20110219
  Serious: Yes (Other)
  Sender: FDA-Public Use
  Company Number: US-JNJFOC-20100706766

PATIENT
  Sex: Female
  Weight: 45.36 kg

DRUGS (4)
  1. ORTHO TRI-CYCLEN LO [Suspect]
     Indication: MENORRHAGIA
     Route: 048
  2. ORTHO TRI-CYCLEN LO [Suspect]
     Indication: MUSCLE SPASMS
     Route: 048
  3. ORTHO TRI-CYCLEN LO [Suspect]
     Indication: ACNE
     Route: 048
  4. ORTHO TRI-CYCLEN LO [Suspect]
     Indication: MENSTRUATION IRREGULAR
     Route: 048

REACTIONS (6)
  - ADVERSE EVENT [None]
  - GASTRIC DISORDER [None]
  - HELICOBACTER INFECTION [None]
  - HYPERCHOLESTEROLAEMIA [None]
  - NEPHROLITHIASIS [None]
  - OFF LABEL USE [None]
